FAERS Safety Report 6926271-5 (Version None)
Quarter: 2010Q3

REPORT INFORMATION
  Report Type: 
  Country: None (occurrence: None)
  Receive Date: 20100816
  Receipt Date: 20100810
  Transmission Date: 20110219
  Serious: Yes (Life-Threatening, Hospitalization, Other)
  Sender: FDA-Public Use
  Company Number: DE-BAXTER-2010BH018524

PATIENT
  Sex: Male

DRUGS (1)
  1. SODIUM CHLORIDE 0.9% IN PLASTIC CONTAINER [Suspect]
     Indication: ERYTHROCYTAPHERESIS
     Route: 042
     Dates: start: 20100702, end: 20100702

REACTIONS (1)
  - ANAPHYLACTOID REACTION [None]
